FAERS Safety Report 6020475-4 (Version None)
Quarter: 2008Q4

REPORT INFORMATION
  Report Type: 
  Country: None (occurrence: None)
  Receive Date: 20081222
  Receipt Date: 20081205
  Transmission Date: 20090506
  Serious: Yes (Death)
  Sender: FDA-Public Use
  Company Number: 1000003187

PATIENT
  Age: 47 Year
  Sex: Male

DRUGS (2)
  1. LEXAPRO [Suspect]
     Indication: CONDITION AGGRAVATED
     Dosage: 10 MG (10 MG, 1 IN 1 D), ORAL
     Route: 048
     Dates: start: 20080930, end: 20081111
  2. TEMAZEPAM [Concomitant]

REACTIONS (2)
  - ASPHYXIA [None]
  - COMPLETED SUICIDE [None]
